FAERS Safety Report 18673873 (Version 2)
Quarter: 2021Q2

REPORT INFORMATION
  Report Type: Report from Study
  Country: US (occurrence: US)
  Receive Date: 20201229
  Receipt Date: 20210614
  Transmission Date: 20210717
  Serious: Yes (Other)
  Sender: FDA-Public Use
  Company Number: US-ACADIA PHARMACEUTICALS INC.-ACA-2020-PIM-003921

PATIENT
  Age: 91 Year
  Sex: Male

DRUGS (10)
  1. XARELTO [Concomitant]
     Active Substance: RIVAROXABAN
  2. CLONAZEPAM. [Concomitant]
     Active Substance: CLONAZEPAM
  3. SULFATRIM [Concomitant]
     Active Substance: SULFAMETHOXAZOLE\TRIMETHOPRIM
  4. COUGH SYRUP [ANTIMONY POTASSIUM TARTRATE;PAPAVER SOMNIFERUM TINCTURE;T [Concomitant]
  5. NUPLAZID [Suspect]
     Active Substance: PIMAVANSERIN TARTRATE
     Indication: PARKINSON^S DISEASE
     Dosage: 34 MILLIGRAM, QD
     Route: 048
     Dates: start: 20201016
  6. CARBIDOPA/LEVODOPA [Concomitant]
     Active Substance: CARBIDOPA\LEVODOPA
  7. SMZ?TMP [Concomitant]
     Active Substance: SULFAMETHOXAZOLE\TRIMETHOPRIM
  8. SEROQUEL [Concomitant]
     Active Substance: QUETIAPINE FUMARATE
  9. ATIVAN [Concomitant]
     Active Substance: LORAZEPAM
  10. FINASTERIDE. [Concomitant]
     Active Substance: FINASTERIDE

REACTIONS (3)
  - Thrombosis [Unknown]
  - Gastrointestinal haemorrhage [Unknown]
  - Hallucination [Not Recovered/Not Resolved]

NARRATIVE: CASE EVENT DATE: 202105
